FAERS Safety Report 8190985-2 (Version None)
Quarter: 2012Q1

REPORT INFORMATION
  Report Type: 
  Country: None (occurrence: None)
  Receive Date: 20120307
  Receipt Date: 20120208
  Transmission Date: 20120608
  Serious: Yes (Other)
  Sender: FDA-Public Use
  Company Number: US-ROCHE-1041559

PATIENT
  Sex: Female

DRUGS (1)
  1. MABTHERA [Suspect]
     Indication: RHEUMATOID ARTHRITIS
     Route: 042
     Dates: start: 20110801

REACTIONS (11)
  - OROPHARYNGEAL BLISTERING [None]
  - PROCTALGIA [None]
  - RASH [None]
  - FATIGUE [None]
  - DRY SKIN [None]
  - NAUSEA [None]
  - ASTHMA [None]
  - ARTHRALGIA [None]
  - URTICARIA [None]
  - DYSPEPSIA [None]
  - FEELING HOT [None]
